FAERS Safety Report 25620374 (Version 1)
Quarter: 2025Q3

REPORT INFORMATION
  Report Type: Spontaneous
  Country: US (occurrence: US)
  Receive Date: 20250730
  Receipt Date: 20250730
  Transmission Date: 20251021
  Serious: No
  Sender: ROCHE
  Company Number: US-ROCHE-10000347001

PATIENT
  Sex: Female

DRUGS (17)
  1. ACTEMRA ACTPEN [Suspect]
     Active Substance: TOCILIZUMAB
     Indication: Rheumatoid arthritis
     Dosage: STRENGTH: 162MG 0.9ML
     Route: 058
  2. AZITHROMYCIN TAB 250 MG [Concomitant]
  3. VALACYCLOVIR [Concomitant]
     Active Substance: VALACYCLOVIR HYDROCHLORIDE
  4. CYCLOBENZAPR TAB 10 MG [Concomitant]
  5. DOULOXETINE CAP 60 MG [Concomitant]
  6. GABAPENTIN [Concomitant]
     Active Substance: GABAPENTIN
  7. GABAPENTIN [Concomitant]
     Active Substance: GABAPENTIN
  8. GABAPENTIN [Concomitant]
     Active Substance: GABAPENTIN
  9. HYDROCO/APAP CAP 5.325MG [Concomitant]
  10. HYDROXY HCL TAB 25 MG [Concomitant]
  11. HYDROXY PAM CAP 25 MG [Concomitant]
  12. LORAZEPAM [Concomitant]
     Active Substance: LORAZEPAM
  13. METHOTREXATE [Concomitant]
     Active Substance: METHOTREXATE
  14. NlTROFUR MAC CAP 100MG [Concomitant]
  15. OXYCODONE [Concomitant]
     Active Substance: OXYCODONE
  16. TRAMADOL HCL TAB 50MG [Concomitant]
  17. TRAZODONE [Concomitant]
     Active Substance: TRAZODONE HYDROCHLORIDE

REACTIONS (5)
  - Swelling [Not Recovered/Not Resolved]
  - Pruritus [Not Recovered/Not Resolved]
  - Scab [Not Recovered/Not Resolved]
  - Erythema [Not Recovered/Not Resolved]
  - Skin ulcer [Not Recovered/Not Resolved]
